FAERS Safety Report 5933574-X (Version None)
Quarter: 2008Q4

REPORT INFORMATION
  Report Type: 
  Country: None (occurrence: None)
  Receive Date: 20081024
  Receipt Date: 20081014
  Transmission Date: 20090506
  Serious: Yes (Life-Threatening)
  Sender: FDA-Public Use
  Company Number: 001429

PATIENT
  Age: 2 Year
  Sex: Female

DRUGS (7)
  1. BUSULFEX [Suspect]
     Indication: STEM CELL TRANSPLANT
     Dosage: 10 ML, DAILY DOSE, INTRAVENOUS
     Route: 042
     Dates: start: 20070416, end: 20070419
  2. GEMTUZUMAB OZOGAMICIN (GEMTUZUMAB OZOGAMICIN) [Suspect]
     Dates: start: 20070705
  3. MELPHALAN (MELPHALAN) [Concomitant]
  4. CLONAZEPAM [Concomitant]
  5. FILGRASTIM (FILGRASTIM) [Concomitant]
  6. METHOTREXATE [Concomitant]
  7. CYCLOSPORINE [Concomitant]

REACTIONS (7)
  - ANOREXIA [None]
  - ENTEROCOCCAL SEPSIS [None]
  - HYPONATRAEMIA [None]
  - NAUSEA [None]
  - PLATELET COUNT DECREASED [None]
  - STOMATITIS [None]
  - VOMITING [None]
